FAERS Safety Report 15920295 (Version 1)
Quarter: 2019Q1

REPORT INFORMATION
  Report Type: Spontaneous
  Country: JP (occurrence: JP)
  Receive Date: 20190205
  Receipt Date: 20190205
  Transmission Date: 20190417
  Serious: Yes (Hospitalization)
  Sender: FDA-Public Use
  Company Number: JP-MYLANLABS-2019M1010781

PATIENT
  Age: 62 Year
  Sex: Male

DRUGS (3)
  1. DOCETAXEL. [Suspect]
     Active Substance: DOCETAXEL
     Indication: SQUAMOUS CELL CARCINOMA OF THE HYPOPHARYNX
     Dosage: TWO COURSES OF INDUCTION CHEMOTHERAPY
     Route: 065
  2. CISPLATIN. [Suspect]
     Active Substance: CISPLATIN
     Indication: SQUAMOUS CELL CARCINOMA OF THE HYPOPHARYNX
     Dosage: TWO COURSES OF INDUCTION CHEMOTHERAPY
     Route: 065
  3. FLUOROURACIL. [Suspect]
     Active Substance: FLUOROURACIL
     Indication: SQUAMOUS CELL CARCINOMA OF THE HYPOPHARYNX
     Dosage: TWO COURSES OF INDUCTION CHEMOTHERAPY
     Route: 065

REACTIONS (3)
  - Sepsis [Recovered/Resolved]
  - Klebsiella infection [Recovered/Resolved]
  - Bacterial translocation [Recovered/Resolved]
